FAERS Safety Report 5656155-4 (Version None)
Quarter: 2008Q1

REPORT INFORMATION
  Report Type: 
  Country: None (occurrence: None)
  Receive Date: 20080305
  Receipt Date: 20080222
  Transmission Date: 20080703
  Serious: Yes (Other)
  Sender: FDA-Public Use
  Company Number: DSU-2008-00259

PATIENT
  Age: 89 Year
  Sex: Female

DRUGS (1)
  1. BENICAR HCT [Suspect]
     Indication: HYPERTENSION
     Dosage: 40/12.5 MG (MG,QD), PER ORAL
     Route: 048

REACTIONS (2)
  - CONVULSION [None]
  - INCORRECT DOSE ADMINISTERED [None]
